FAERS Safety Report 23601148 (Version 1)
Quarter: 2024Q1

REPORT INFORMATION
  Report Type: Spontaneous
  Country: GR (occurrence: GR)
  Receive Date: 20240306
  Receipt Date: 20240306
  Transmission Date: 20240410
  Serious: Yes (Other)
  Sender: FDA-Public Use
  Company Number: GR-PFM-2024-01385

PATIENT
  Sex: Male

DRUGS (2)
  1. BRAFTOVI [Suspect]
     Active Substance: ENCORAFENIB
     Indication: Metastatic malignant melanoma
     Dosage: 6 CAPSULES OF 75MG ONCE DAILY
     Route: 065
     Dates: start: 20231101
  2. MEKTOVI [Suspect]
     Active Substance: BINIMETINIB
     Indication: Metastatic malignant melanoma
     Dosage: 6 TABLETS OF 15MG DAILY, THREE TABLETS IN THE MORNING AND THREE TABLETS AT NIGHT
     Route: 065
     Dates: start: 20231101

REACTIONS (1)
  - Pneumonitis [Unknown]
